FAERS Safety Report 22721942 (Version 4)
Quarter: 2023Q4

REPORT INFORMATION
  Report Type: Report from Study
  Country: US (occurrence: US)
  Receive Date: 20230719
  Receipt Date: 20231111
  Transmission Date: 20240110
  Serious: Yes (Other)
  Sender: FDA-Public Use
  Company Number: US-ABBVIE-5175703

PATIENT
  Age: 77 Year
  Sex: Male

DRUGS (1)
  1. HUMIRA [Suspect]
     Active Substance: ADALIMUMAB
     Indication: Crohn^s disease
     Dosage: CITRATE FREE?FORM STRENGTH: 40 MILLIGRAM
     Route: 058

REACTIONS (4)
  - Cataract [Recovering/Resolving]
  - Bowel movement irregularity [Recovering/Resolving]
  - Flatulence [Recovered/Resolved]
  - Adverse food reaction [Recovered/Resolved]

NARRATIVE: CASE EVENT DATE: 20230601
